FAERS Safety Report 13537634 (Version 2)
Quarter: 2017Q3

REPORT INFORMATION
  Report Type: Report from Study
  Country: US (occurrence: US)
  Receive Date: 20170511
  Receipt Date: 20170719
  Transmission Date: 20171127
  Serious: Yes (Hospitalization)
  Sender: FDA-Public Use
  Company Number: US-EXELIXIS-XL18417009072

PATIENT
  Age: 59 Year
  Sex: Male
  Weight: 127.9 kg

DRUGS (4)
  1. XL184 [Suspect]
     Active Substance: CABOZANTINIB
     Dosage: 20 MG, QD
     Route: 048
     Dates: start: 20151009, end: 20170209
  2. NIVOLUMAB [Suspect]
     Active Substance: NIVOLUMAB
     Indication: TRANSITIONAL CELL CARCINOMA
     Dosage: UNK
     Dates: end: 20160705
  3. XL184 [Suspect]
     Active Substance: CABOZANTINIB
     Indication: TRANSITIONAL CELL CARCINOMA
     Dosage: UNK MG, QD
     Route: 048
     Dates: start: 20150722
  4. SITAGLIPTIN [Concomitant]
     Active Substance: SITAGLIPTIN

REACTIONS (3)
  - Amylase increased [Unknown]
  - Pancreatitis [Unknown]
  - Lipase increased [Unknown]

NARRATIVE: CASE EVENT DATE: 20170209
